FAERS Safety Report 9964784 (Version 1)
Quarter: 2014Q1

REPORT INFORMATION
  Report Type: Spontaneous
  Country: US (occurrence: US)
  Receive Date: 20140305
  Receipt Date: 20140305
  Transmission Date: 20141002
  Serious: No
  Sender: FDA-Public Use
  Company Number: US-AMGEN-USASP2014001648

PATIENT
  Age: 57 Year
  Sex: Female

DRUGS (1)
  1. ENBREL [Suspect]
     Indication: RHEUMATOID ARTHRITIS
     Dosage: 50 MG ONCE A WEEK
     Route: 065
     Dates: start: 20131002

REACTIONS (5)
  - Drug effect incomplete [Not Recovered/Not Resolved]
  - Local swelling [Recovered/Resolved]
  - Joint stiffness [Not Recovered/Not Resolved]
  - Joint swelling [Recovered/Resolved]
  - Injection site erythema [Recovered/Resolved]
